FAERS Safety Report 22694532 (Version 5)
Quarter: 2024Q2

REPORT INFORMATION
  Report Type: Spontaneous
  Country: US (occurrence: US)
  Receive Date: 20230712
  Receipt Date: 20240620
  Transmission Date: 20240716
  Serious: Yes (Other)
  Sender: FDA-Public Use
  Company Number: US-ABBVIE-5323347

PATIENT
  Sex: Female
  Weight: 46 kg

DRUGS (12)
  1. RESTASIS [Suspect]
     Active Substance: CYCLOSPORINE
     Indication: Dry eye
     Dosage: 0.5MG/ML , MULTIDOSE
     Route: 047
     Dates: start: 2021, end: 2021
  2. RESTASIS [Suspect]
     Active Substance: CYCLOSPORINE
     Dosage: ONE DROP IN EACH EYE
     Route: 047
     Dates: start: 20230706
  3. RESTASIS [Suspect]
     Active Substance: CYCLOSPORINE
     Indication: Dry eye
     Dosage: ONE DROP IN EACH EYE
     Route: 047
     Dates: start: 202008, end: 202010
  4. RESTASIS [Suspect]
     Active Substance: CYCLOSPORINE
     Dosage: ONE DROP IN EACH EYE
     Route: 047
     Dates: start: 2019, end: 202007
  5. CARAFATE [Concomitant]
     Active Substance: SUCRALFATE
     Indication: Gastrooesophageal reflux disease
  6. CEQUA [Suspect]
     Active Substance: CYCLOSPORINE
     Indication: Miosis
     Dosage: ONE DROP IN EACH EYE
     Route: 047
     Dates: start: 202010, end: 202011
  7. PROLIA [Concomitant]
     Active Substance: DENOSUMAB
     Indication: Osteoporosis
  8. LINZESS [Concomitant]
     Active Substance: LINACLOTIDE
     Indication: Irritable bowel syndrome
  9. ALBUTEROL [Concomitant]
     Active Substance: ALBUTEROL
     Indication: Chronic obstructive pulmonary disease
     Route: 055
  10. PROLASTIN [Concomitant]
     Active Substance: .ALPHA.1-PROTEINASE INHIBITOR HUMAN
     Indication: Alpha-1 antitrypsin deficiency
  11. SYNTHROID [Concomitant]
     Active Substance: LEVOTHYROXINE SODIUM
     Indication: Hypothyroidism
  12. DEXILANT [Concomitant]
     Active Substance: DEXLANSOPRAZOLE
     Indication: Gastrooesophageal reflux disease

REACTIONS (18)
  - Cataract [Unknown]
  - Eye irritation [Recovered/Resolved]
  - Eye pain [Recovered/Resolved]
  - Eye irritation [Not Recovered/Not Resolved]
  - Product packaging difficult to open [Not Recovered/Not Resolved]
  - Eye pain [Recovered/Resolved]
  - Eye pain [Not Recovered/Not Resolved]
  - Eye pain [Not Recovered/Not Resolved]
  - Eye pain [Recovered/Resolved]
  - Cataract [Unknown]
  - Expired product administered [Not Recovered/Not Resolved]
  - Eye irritation [Recovered/Resolved]
  - Dry eye [Not Recovered/Not Resolved]
  - Eye pain [Recovered/Resolved]
  - Eye pain [Recovered/Resolved]
  - Eye irritation [Recovered/Resolved]
  - Foreign body sensation in eyes [Not Recovered/Not Resolved]
  - Eye irritation [Recovered/Resolved]

NARRATIVE: CASE EVENT DATE: 20190101
